FAERS Safety Report 21121482 (Version 1)
Quarter: 2022Q3

REPORT INFORMATION
  Report Type: Spontaneous
  Country: US (occurrence: US)
  Receive Date: 20220722
  Receipt Date: 20220722
  Transmission Date: 20221027
  Serious: Yes (Hospitalization, Other)
  Sender: FDA-Public Use
  Company Number: US-HORIZON THERAPEUTICS-HZN-2022-005358

PATIENT

DRUGS (5)
  1. RAYOS [Suspect]
     Active Substance: PREDNISONE
     Indication: Rheumatoid lung
     Route: 065
  2. ABATACEPT [Concomitant]
     Active Substance: ABATACEPT
  3. UNSPECIFIED INGREDIENT [Concomitant]
     Active Substance: UNSPECIFIED INGREDIENT
     Indication: Rheumatoid arthritis
     Dosage: HIGH-DOSE STEROIDS
  4. ALTEPLASE [Concomitant]
     Active Substance: ALTEPLASE
     Route: 034
  5. DORNASE ALFA [Concomitant]
     Active Substance: DORNASE ALFA

REACTIONS (1)
  - Rheumatoid lung [Unknown]
